FAERS Safety Report 7734681-1 (Version None)
Quarter: 2011Q3

REPORT INFORMATION
  Report Type: 
  Country: None (occurrence: None)
  Receive Date: 20110907
  Receipt Date: 20110829
  Transmission Date: 20111222
  Serious: Yes (Hospitalization)
  Sender: FDA-Public Use
  Company Number: US-ACTELION-A-US2011-44531

PATIENT

DRUGS (1)
  1. TRACLEER [Suspect]
     Indication: PULMONARY ARTERIAL HYPERTENSION
     Dosage: UNK
     Route: 048
     Dates: start: 20110131

REACTIONS (8)
  - PALPITATIONS [None]
  - ARTHRALGIA [None]
  - SURGERY [None]
  - FLUSHING [None]
  - MYALGIA [None]
  - ANAEMIA [None]
  - SWELLING [None]
  - DIZZINESS [None]
